FAERS Safety Report 7102427-6 (Version None)
Quarter: 2010Q4

REPORT INFORMATION
  Report Type: 
  Country: None (occurrence: None)
  Receive Date: 20101115
  Receipt Date: 20101105
  Transmission Date: 20110411
  Serious: No
  Sender: FDA-Public Use
  Company Number: US-BIOGENIDEC-2010BI039557

PATIENT
  Age: 40 Year
  Sex: Female

DRUGS (1)
  1. TYSABRI [Suspect]
     Indication: MULTIPLE SCLEROSIS
     Route: 042
     Dates: start: 20100706

REACTIONS (6)
  - ASTHENIA [None]
  - ASTHENOPIA [None]
  - HEADACHE [None]
  - PARAESTHESIA [None]
  - PHOTOPHOBIA [None]
  - VISION BLURRED [None]
